FAERS Safety Report 6401033-6 (Version None)
Quarter: 2009Q4

REPORT INFORMATION
  Report Type: 
  Country: None (occurrence: None)
  Receive Date: 20091013
  Receipt Date: 20091013
  Transmission Date: 20100525
  Serious: Yes (Other)
  Sender: FDA-Public Use
  Company Number: None

PATIENT
  Age: 28 Year
  Sex: Male
  Weight: 86.1834 kg

DRUGS (2)
  1. TRICOR [Suspect]
     Indication: BLOOD CHOLESTEROL INCREASED
     Dosage: 1 PILL PER DAY EVERY DAY
     Dates: start: 20080415, end: 20080528
  2. ANTARA 130 MG [Suspect]
     Indication: BLOOD CHOLESTEROL INCREASED
     Dosage: 1 PILL PER DAY EVERY DAY
     Dates: start: 20080604, end: 20080629

REACTIONS (5)
  - ABDOMINAL PAIN LOWER [None]
  - CHEST PAIN [None]
  - ERECTILE DYSFUNCTION [None]
  - HEART RATE INCREASED [None]
  - PYREXIA [None]
